FAERS Safety Report 24977001 (Version 12)
Quarter: 2025Q3

REPORT INFORMATION
  Report Type: Report from Study
  Country: US (occurrence: US)
  Receive Date: 20250217
  Receipt Date: 20250721
  Transmission Date: 20251020
  Serious: No
  Sender: ACADIA PHARMACEUTICALS
  Company Number: US-ACADIA PHARMACEUTICALS INC.-ACA-2025-TRF-001151

PATIENT

DRUGS (12)
  1. DAYBUE [Suspect]
     Active Substance: TROFINETIDE
     Indication: Rett syndrome
     Dosage: 30 MILLILITRE, BID
     Route: 048
  2. DAYBUE [Suspect]
     Active Substance: TROFINETIDE
     Dosage: 12 MILLILITER, TID
     Route: 048
     Dates: start: 20250116
  3. DAYBUE [Suspect]
     Active Substance: TROFINETIDE
     Dosage: 13 MILLILITER, BID
     Route: 048
  4. DAYBUE [Suspect]
     Active Substance: TROFINETIDE
     Dosage: 13 MILLILITER, TID
     Route: 048
  5. DAYBUE [Suspect]
     Active Substance: TROFINETIDE
     Dosage: 15 MILLILITER, TID
     Route: 048
     Dates: start: 20250317
  6. DAYBUE [Suspect]
     Active Substance: TROFINETIDE
     Dosage: 22 ML QAM AND 23 ML QPM
     Route: 048
  7. CULTURELLE [Suspect]
     Active Substance: LACTOBACILLUS RHAMNOSUS
     Indication: Frequent bowel movements
     Dosage: UNK, QD (1 PACKET)/1 PACKET CULTURELLE KIDS DAILY
     Route: 048
     Dates: start: 20250307
  8. CULTURELLE [Suspect]
     Active Substance: LACTOBACILLUS RHAMNOSUS
     Indication: Diarrhoea
     Route: 065
  9. BENEFIBER [Suspect]
     Active Substance: STARCH, WHEAT
     Indication: Frequent bowel movements
     Dosage: QD (1 TABLESPOON)/ 1 TSP DAILY
     Route: 048
     Dates: start: 20250307
  10. BENEFIBER [Suspect]
     Active Substance: STARCH, WHEAT
     Indication: Diarrhoea
  11. ZYRTEC [Concomitant]
     Active Substance: CETIRIZINE HYDROCHLORIDE
  12. VITAMINS NOS [Concomitant]
     Active Substance: VITAMINS

REACTIONS (12)
  - Frequent bowel movements [Recovering/Resolving]
  - Drug intolerance [Not Recovered/Not Resolved]
  - Crying [Recovering/Resolving]
  - Gingival pain [Not Recovered/Not Resolved]
  - Teething [Not Recovered/Not Resolved]
  - Viral infection [Recovered/Resolved]
  - Illness [Recovered/Resolved]
  - Irritability [Recovered/Resolved]
  - Diarrhoea [Recovered/Resolved]
  - Underdose [Not Recovered/Not Resolved]
  - Inappropriate schedule of product administration [Not Recovered/Not Resolved]
  - Drug ineffective [Not Recovered/Not Resolved]

NARRATIVE: CASE EVENT DATE: 20250124
